FAERS Safety Report 9809015 (Version 2)
Quarter: 2014Q1

REPORT INFORMATION
  Report Type: Spontaneous
  Country: US (occurrence: US)
  Receive Date: 20140110
  Receipt Date: 20140115
  Transmission Date: 20141002
  Serious: Yes (Death)
  Sender: FDA-Public Use
  Company Number: US-PFIZER INC-2014007616

PATIENT
  Sex: 0

DRUGS (3)
  1. MORPHINE SULFATE [Suspect]
  2. CITALOPRAM [Suspect]
     Route: 065
  3. HYDROMORPHONE [Suspect]

REACTIONS (1)
  - Death [Fatal]
